FAERS Safety Report 6170887-3 (Version None)
Quarter: 2009Q3

REPORT INFORMATION
  Report Type: 
  Country: None (occurrence: None)
  Receive Date: 20090427
  Receipt Date: 20080414
  Transmission Date: 20100115
  Serious: Yes (Hospitalization)
  Sender: FDA-Public Use
  Company Number: 2008-175565-NL

PATIENT
  Age: 32 Year
  Sex: Female

DRUGS (1)
  1. DESOGESTREL AND ETHINYL ESTRADIOL [Suspect]
     Indication: CONTRACEPTION
     Dosage: DF ORAL
     Route: 048
     Dates: start: 20040101, end: 20080229

REACTIONS (2)
  - MYOSITIS [None]
  - THROMBOPHLEBITIS [None]
